FAERS Safety Report 23663229 (Version 1)
Quarter: 2024Q1

REPORT INFORMATION
  Report Type: Spontaneous
  Country: IT (occurrence: IT)
  Receive Date: 20240322
  Receipt Date: 20240322
  Transmission Date: 20240410
  Serious: Yes (Life-Threatening, Hospitalization, Other)
  Sender: FDA-Public Use
  Company Number: None

PATIENT
  Age: 52 Year
  Sex: Male
  Weight: 66 kg

DRUGS (2)
  1. NIVOLUMAB [Suspect]
     Active Substance: NIVOLUMAB
     Indication: Renal cancer stage IV
     Route: 042
     Dates: start: 20230523, end: 20230704
  2. IPILIMUMAB [Suspect]
     Active Substance: IPILIMUMAB
     Indication: Renal cancer stage IV
     Route: 042
     Dates: start: 20230523, end: 20230704

REACTIONS (2)
  - Autoimmune colitis [Recovered/Resolved with Sequelae]
  - Bronchopulmonary aspergillosis [Recovering/Resolving]

NARRATIVE: CASE EVENT DATE: 20230706
